FAERS Safety Report 7413317-3 (Version None)
Quarter: 2011Q2

REPORT INFORMATION
  Report Type: 
  Country: None (occurrence: None)
  Receive Date: 20110413
  Receipt Date: 20110331
  Transmission Date: 20111010
  Serious: Yes (Hospitalization, Other)
  Sender: FDA-Public Use
  Company Number: PHEH2009US04183

PATIENT
  Sex: Female

DRUGS (43)
  1. AREDIA [Suspect]
     Indication: METASTASES TO BONE
  2. FOSAMAX [Suspect]
     Indication: OSTEOPOROSIS
  3. ZOLOFT [Concomitant]
  4. SYNTHROID [Concomitant]
  5. BEXTRA [Concomitant]
     Dosage: 10 MG, BID
     Route: 048
  6. REGLAN [Concomitant]
  7. LOVENOX [Concomitant]
     Dosage: 40 MG, QD
     Route: 058
  8. ZESTRIL [Concomitant]
     Dosage: 10 MG, QD
     Route: 048
  9. LOMOTIL [Concomitant]
  10. AROMASIN [Concomitant]
     Indication: BREAST CANCER
  11. ZANTAC [Concomitant]
  12. TYLOX [Concomitant]
  13. NOLVADEX [Concomitant]
  14. HYDROCODONE [Concomitant]
  15. DEPO-MEDROL [Concomitant]
  16. POTASSIUM CHLORIDE [Concomitant]
     Dosage: UNK
  17. INSULIN [Concomitant]
  18. TRICOR [Concomitant]
  19. CEFAZOLIN [Concomitant]
  20. FLEXERIL [Concomitant]
  21. NPH INSULIN [Concomitant]
     Dosage: 20 U, QD
     Route: 058
  22. AREDIA [Suspect]
     Indication: OSTEOPOROSIS
     Dosage: MONTHLY
     Dates: start: 20000417, end: 20060915
  23. OXYCONTIN [Concomitant]
  24. LIDOCAINE [Concomitant]
  25. HUMULIN R [Concomitant]
     Dosage: 15 U, QHS
     Route: 058
  26. CIPRO [Concomitant]
     Dosage: 500 MG, BID
     Route: 048
  27. AREDIA [Suspect]
     Indication: OSTEITIS DEFORMANS
     Dosage: EVERY 3 MONLTHS
  28. MORPHINE [Concomitant]
     Dosage: 25 MG/ML, UNK
     Route: 037
  29. LORTAB [Concomitant]
     Dosage: 10 MG, PRN
     Route: 048
  30. MECLIZINE [Concomitant]
     Dosage: 25 MG, TID
     Route: 048
  31. DOCUSATE [Concomitant]
     Dosage: 100 MG, QD
     Route: 048
  32. FOSAMAX [Suspect]
     Indication: OSTEITIS DEFORMANS
  33. MAVIK [Concomitant]
  34. PHENERGAN [Concomitant]
  35. AMARYL [Concomitant]
  36. STEROIDS NOS [Concomitant]
  37. LASIX [Concomitant]
  38. SINGULAIR [Concomitant]
     Dosage: 10 MG, QHS
     Route: 048
  39. ZOMETA [Suspect]
  40. AMBIEN [Concomitant]
  41. PERCOCET [Concomitant]
  42. NPH INSULIN [Concomitant]
     Dosage: 15 U, QHS
     Route: 058
  43. MYCOSTATIN [Concomitant]
     Dosage: UNK
     Route: 061

REACTIONS (38)
  - EMOTIONAL DISTRESS [None]
  - OSTEOARTHRITIS [None]
  - BACK PAIN [None]
  - JAW DISORDER [None]
  - NECK PAIN [None]
  - KYPHOSCOLIOSIS [None]
  - NEPHROLITHIASIS [None]
  - DIZZINESS [None]
  - VERTIGO [None]
  - CONFUSIONAL STATE [None]
  - HALLUCINATION [None]
  - ANXIETY [None]
  - BONE SWELLING [None]
  - ERYTHEMA [None]
  - CHRONIC SINUSITIS [None]
  - TOOTH LOSS [None]
  - ADRENAL MASS [None]
  - ADRENAL ADENOMA [None]
  - ABDOMINAL PAIN [None]
  - FIBULA FRACTURE [None]
  - MACULAR DEGENERATION [None]
  - CATARACT [None]
  - STASIS DERMATITIS [None]
  - INJURY [None]
  - PAIN [None]
  - OSTEOMYELITIS [None]
  - CONDITION AGGRAVATED [None]
  - INFECTION [None]
  - LACERATION [None]
  - OSTEONECROSIS OF JAW [None]
  - PERIPHERAL VASCULAR DISORDER [None]
  - CELLULITIS [None]
  - FALL [None]
  - SKELETAL INJURY [None]
  - ANHEDONIA [None]
  - CHOLELITHIASIS [None]
  - OEDEMA PERIPHERAL [None]
  - FOOT FRACTURE [None]
